FAERS Safety Report 16808039 (Version 1)
Quarter: 2019Q3

REPORT INFORMATION
  Report Type: Spontaneous
  Country: US (occurrence: US)
  Receive Date: 20190916
  Receipt Date: 20190916
  Transmission Date: 20191005
  Serious: Yes (Other)
  Sender: FDA-Public Use
  Company Number: US-ALEXION-A201913885

PATIENT
  Age: 21 Year
  Sex: Male

DRUGS (1)
  1. ULTOMIRIS [Suspect]
     Active Substance: RAVULIZUMAB-CWVZ
     Indication: PAROXYSMAL NOCTURNAL HAEMOGLOBINURIA
     Dosage: 3600 MG, UNK
     Route: 042

REACTIONS (4)
  - Hyperbilirubinaemia [Unknown]
  - Haemolysis [Unknown]
  - Blood lactate dehydrogenase increased [Unknown]
  - Reticulocytosis [Unknown]
